FAERS Safety Report 7528995-8 (Version None)
Quarter: 2011Q2

REPORT INFORMATION
  Report Type: 
  Country: None (occurrence: None)
  Receive Date: 20110607
  Receipt Date: 20110523
  Transmission Date: 20111010
  Serious: No
  Sender: FDA-Public Use
  Company Number: US-B.I. PHARMACEUTICALS,INC./RIDGEFIELD-2011-BP-12122BP

PATIENT
  Sex: Female

DRUGS (4)
  1. PRADAXA [Suspect]
     Indication: ATRIAL FIBRILLATION
  2. FLECAINIDE ACETATE [Concomitant]
     Dosage: 5 MG
  3. LEVOTHYROXINE SODIUM [Concomitant]
     Dosage: 0.05 MG
  4. WARFARIN SODIUM [Concomitant]

REACTIONS (8)
  - HYPERSENSITIVITY [None]
  - DIARRHOEA [None]
  - GASTROOESOPHAGEAL REFLUX DISEASE [None]
  - ABDOMINAL DISTENSION [None]
  - HEADACHE [None]
  - RECTAL HAEMORRHAGE [None]
  - HAEMORRHOIDS [None]
  - ABDOMINAL PAIN UPPER [None]
